FAERS Safety Report 13192842 (Version 3)
Quarter: 2017Q1

REPORT INFORMATION
  Report Type: Spontaneous
  Country: ES (occurrence: ES)
  Receive Date: 20170207
  Receipt Date: 20170329
  Transmission Date: 20170428
  Serious: Yes (Disabling, Other)
  Sender: FDA-Public Use
  Company Number: ES-B.I. PHARMACEUTICALS,INC./RIDGEFIELD-2017-BI-005954

PATIENT
  Age: 78 Year
  Sex: Male

DRUGS (1)
  1. YANIMO RESPIMAT [Suspect]
     Active Substance: OLODATEROL HYDROCHLORIDE\TIOTROPIUM BROMIDE MONOHYDRATE
     Indication: BRONCHITIS
     Dosage: FORM STRENGTH: 2.5/2.5 MICROGRAM
     Route: 031
     Dates: start: 20170114

REACTIONS (2)
  - Drug administered at inappropriate site [Unknown]
  - Retinal artery occlusion [Unknown]

NARRATIVE: CASE EVENT DATE: 20170114
